FAERS Safety Report 6179161-2 (Version None)
Quarter: 2009Q2

REPORT INFORMATION
  Report Type: 
  Country: None (occurrence: None)
  Receive Date: 20090505
  Receipt Date: 20090504
  Transmission Date: 20091009
  Serious: Yes (Other)
  Sender: FDA-Public Use
  Company Number: US-BAYER-200914379NA

PATIENT
  Age: 18 Year
  Sex: Female

DRUGS (1)
  1. MIRENA [Suspect]
     Indication: CONTRACEPTION
     Route: 015
     Dates: start: 20090227, end: 20090227

REACTIONS (5)
  - DEVICE SHAPE ALTERATION [None]
  - HYPOAESTHESIA [None]
  - IUD MIGRATION [None]
  - PAIN [None]
  - PROCEDURAL PAIN [None]
